FAERS Safety Report 7731267-X (Version None)
Quarter: 2011Q3

REPORT INFORMATION
  Report Type: 
  Country: None (occurrence: None)
  Receive Date: 20110906
  Receipt Date: 20110902
  Transmission Date: 20111222
  Serious: Yes (Death, Life-Threatening, Hospitalization)
  Sender: FDA-Public Use
  Company Number: US-PFIZER INC-2007078721

PATIENT
  Sex: Male
  Weight: 88.435 kg

DRUGS (4)
  1. CHANTIX [Suspect]
     Indication: SMOKING CESSATION THERAPY
     Dosage: 0.5 MG, 1X/DAY
     Dates: start: 20070128, end: 20070101
  2. CHANTIX [Suspect]
     Dosage: 1 MG, 2X/DAY
     Dates: start: 20070201, end: 20070501
  3. CHANTIX [Suspect]
     Dosage: UNK
     Dates: start: 20070101
  4. CHANTIX [Suspect]
     Dosage: 0.5 MG, 2X/DAY
     Route: 048
     Dates: start: 20070101, end: 20070201

REACTIONS (5)
  - DYSPNOEA [None]
  - NAUSEA [None]
  - PERSONALITY CHANGE [None]
  - ABNORMAL DREAMS [None]
  - MYOCARDIAL INFARCTION [None]
